FAERS Safety Report 7350896-9 (Version None)
Quarter: 2011Q1

REPORT INFORMATION
  Report Type: 
  Country: None (occurrence: None)
  Receive Date: 20110314
  Receipt Date: 20110304
  Transmission Date: 20110831
  Serious: Yes (Hospitalization, Other)
  Sender: FDA-Public Use
  Company Number: DE-GENZYME-RENA-1001115

PATIENT
  Sex: Female
  Weight: 54 kg

DRUGS (21)
  1. TORASEMIDE [Concomitant]
     Indication: HYPERTENSION
     Dosage: 200 MG, QD
     Dates: start: 20100331
  2. CLONIDIN-RATIOPHARM [Concomitant]
     Indication: HYPERTENSION
     Dosage: UNK
     Dates: start: 20100504
  3. VENOFER [Concomitant]
     Indication: NEPHROGENIC ANAEMIA
     Dosage: UNK
     Dates: start: 20091116
  4. BERODUAL N [Concomitant]
     Indication: CHRONIC OBSTRUCTIVE PULMONARY DISEASE
     Dosage: UNK
     Dates: start: 20090219
  5. DIOVAN [Concomitant]
     Indication: HYPERTENSION
     Dosage: 240 UNK, QD
     Dates: start: 20090625
  6. SPIRIVA [Concomitant]
     Indication: CHRONIC OBSTRUCTIVE PULMONARY DISEASE
     Dosage: UNK
     Dates: start: 20081117
  7. PANTOZOL [Concomitant]
     Indication: PROPHYLAXIS
     Dosage: 20 MG, QD
     Dates: start: 20070625
  8. BRONCHORETARD [Concomitant]
     Indication: CHRONIC OBSTRUCTIVE PULMONARY DISEASE
     Dosage: UNK
     Dates: start: 20100331
  9. NAC DIAGNOSTIC REAGENT [Concomitant]
     Indication: CHRONIC OBSTRUCTIVE PULMONARY DISEASE
     Dosage: 600 MG, QD
     Dates: start: 20100622
  10. PARACODIN N [Concomitant]
     Indication: CHRONIC OBSTRUCTIVE PULMONARY DISEASE
     Dosage: UNK
     Dates: start: 20080917
  11. MCP AL [Concomitant]
     Indication: NAUSEA
     Dosage: UNK
  12. CARVEDILOL 1A PHARMA [Concomitant]
     Indication: HYPERTENSION
     Dosage: 25 MG, BID
     Dates: start: 20090625
  13. PLAVIX [Concomitant]
     Indication: ANTICOAGULANT THERAPY
     Dosage: UNK
     Dates: start: 20100201
  14. SURGAM [Concomitant]
     Indication: ARTHRITIS
     Dosage: UNK
     Dates: start: 20080616
  15. RENVELA [Suspect]
     Indication: HYPERPHOSPHATAEMIA
     Dosage: 4 G, QD
     Route: 048
     Dates: start: 20091221
  16. AMLODIPINE [Concomitant]
     Indication: HYPERTENSION
     Dosage: 15 MG, QD
     Dates: start: 20080821
  17. DREISAVIT N [Concomitant]
     Indication: PRODUCT USED FOR UNKNOWN INDICATION
     Dosage: UNK
     Dates: start: 20080714
  18. CPS [Concomitant]
     Indication: HYPOKALAEMIA
     Dosage: UNK
     Dates: start: 20090714
  19. SIMVABETA [Concomitant]
     Indication: HYPERCHOLESTEROLAEMIA
     Dosage: 40 MG, QD
     Dates: start: 20090618
  20. SYMBICORT [Concomitant]
     Indication: CHRONIC OBSTRUCTIVE PULMONARY DISEASE
     Dosage: UNK
     Dates: start: 20090511
  21. ARANESP [Concomitant]
     Indication: NEPHROGENIC ANAEMIA
     Dosage: UNK
     Dates: start: 20100118

REACTIONS (4)
  - DYSPNOEA AT REST [None]
  - VASCULAR CALCIFICATION [None]
  - ARTERIAL THERAPEUTIC PROCEDURE [None]
  - INFECTIVE EXACERBATION OF CHRONIC OBSTRUCTIVE AIRWAYS DISEASE [None]
